FAERS Safety Report 6709820-1 (Version None)
Quarter: 2010Q2

REPORT INFORMATION
  Report Type: 
  Country: None (occurrence: None)
  Receive Date: 20100504
  Receipt Date: 20100429
  Transmission Date: 20101027
  Serious: Yes (Hospitalization)
  Sender: FDA-Public Use
  Company Number: A0841041A

PATIENT
  Age: 43 Year
  Sex: Female

DRUGS (7)
  1. PROMACTA [Suspect]
     Indication: IDIOPATHIC THROMBOCYTOPENIC PURPURA
     Dosage: 75MG PER DAY
     Route: 048
     Dates: start: 20090205, end: 20091231
  2. CORTICOSTEROIDS [Concomitant]
     Indication: IDIOPATHIC THROMBOCYTOPENIC PURPURA
  3. DANAZOL [Concomitant]
     Indication: IDIOPATHIC THROMBOCYTOPENIC PURPURA
     Dosage: 200MG FOUR TIMES PER DAY
  4. OXYCODONE [Concomitant]
     Dosage: 5MG AS REQUIRED
  5. MS CONTIN [Concomitant]
  6. NEURONTIN [Concomitant]
     Dosage: 300MG THREE TIMES PER DAY
  7. FOSAMAX [Concomitant]

REACTIONS (9)
  - ABDOMINAL PAIN [None]
  - ANEURYSM [None]
  - DEATH [None]
  - HAEMORRHAGE [None]
  - IDIOPATHIC THROMBOCYTOPENIC PURPURA [None]
  - LIVER FUNCTION TEST ABNORMAL [None]
  - RENAL FAILURE ACUTE [None]
  - RENAL HAEMATOMA [None]
  - RETROPERITONEAL HAEMORRHAGE [None]
